FAERS Safety Report 8599281-2 (Version None)
Quarter: 2012Q3

REPORT INFORMATION
  Report Type: 
  Country: None (occurrence: None)
  Receive Date: 20120816
  Receipt Date: 20120613
  Transmission Date: 20120928
  Serious: Yes (Other)
  Sender: FDA-Public Use
  Company Number: US-AMGEN-USASP2012022195

PATIENT
  Age: 65 Year
  Sex: Male
  Weight: 139 kg

DRUGS (4)
  1. NEUPOGEN [Suspect]
     Indication: CHEMOTHERAPY
     Dosage: 480 MUG, UNK
     Route: 058
     Dates: start: 20120330, end: 20120404
  2. LEUCOVORIN CALCIUM [Concomitant]
     Indication: COLON CANCER
     Dosage: UNK
     Route: 042
     Dates: start: 20120201, end: 20120501
  3. OXALIPLATIN [Concomitant]
     Indication: COLON CANCER
     Dosage: UNK
     Route: 042
     Dates: start: 20120201, end: 20120501
  4. FLUOROURACIL                       /00098802/ [Concomitant]
     Indication: COLON CANCER
     Dosage: UNK
     Route: 042
     Dates: start: 20120201, end: 20120501

REACTIONS (1)
  - SPLENOMEGALY [None]
